FAERS Safety Report 10926863 (Version 1)
Quarter: 2015Q1

REPORT INFORMATION
  Report Type: Spontaneous
  Country: US (occurrence: None)
  Receive Date: 20150212
  Receipt Date: 20150212
  Transmission Date: 20150721
  Serious: No
  Sender: FDA-Public Use
  Company Number: TPA2011A08156

PATIENT
  Age: 61 Year
  Sex: Male
  Weight: 61.24 kg

DRUGS (3)
  1. ULORIC [Suspect]
     Active Substance: FEBUXOSTAT
     Indication: GOUT
     Route: 048
     Dates: start: 20111123
  2. COLCRYS [Concomitant]
     Active Substance: COLCHICINE
  3. METHYLPREDNISOLONE. [Concomitant]
     Active Substance: METHYLPREDNISOLONE

REACTIONS (5)
  - Tremor [None]
  - Feeling abnormal [None]
  - Abnormal dreams [None]
  - Listless [None]
  - Paranoia [None]

NARRATIVE: CASE EVENT DATE: 201111
